FAERS Safety Report 6820217-6 (Version None)
Quarter: 2010Q3

REPORT INFORMATION
  Report Type: 
  Country: None (occurrence: None)
  Receive Date: 20100707
  Receipt Date: 20100628
  Transmission Date: 20110219
  Serious: Yes (Other)
  Sender: FDA-Public Use
  Company Number: US-PFIZER INC-2010080623

PATIENT
  Sex: Female
  Weight: 65.76 kg

DRUGS (7)
  1. NICOTROL [Suspect]
     Indication: SMOKING CESSATION THERAPY
     Dosage: 2 PUFFS AS NEEDED
     Dates: start: 20100601, end: 20100601
  2. PLAVIX [Concomitant]
     Indication: ARTERIOSCLEROSIS
     Dosage: UNK, 1X/DAY
     Route: 048
  3. LYRICA [Concomitant]
     Indication: PAIN MANAGEMENT
     Dosage: 200MG TWO TIMES A DAY AND 150MG ONCE DAILY
     Route: 048
  4. ZETIA [Concomitant]
     Indication: ARTERIOSCLEROSIS
     Dosage: UNK, 1X/DAY
     Route: 048
  5. ACETYLSALICYLIC ACID [Concomitant]
     Indication: ARTERIOSCLEROSIS
     Dosage: 81 MG, 1X/DAY
     Route: 048
  6. RANITIDINE [Concomitant]
     Indication: DYSPEPSIA
     Dosage: 150 MG, 2X/DAY
     Route: 048
  7. FUROSEMIDE [Concomitant]
     Indication: SWELLING
     Dosage: 20 MG, 2X/DAY
     Route: 048

REACTIONS (1)
  - OROPHARYNGEAL BLISTERING [None]
